FAERS Safety Report 17006648 (Version 1)
Quarter: 2019Q4

REPORT INFORMATION
  Report Type: Spontaneous
  Country: US (occurrence: US)
  Receive Date: 20191107
  Receipt Date: 20191107
  Transmission Date: 20200122
  Serious: Yes (Death)
  Sender: FDA-Public Use
  Company Number: US-ARRAY-2019-06664

PATIENT

DRUGS (1)
  1. MEKTOVI [Suspect]
     Active Substance: BINIMETINIB
     Indication: ADRENAL GLAND CANCER
     Dosage: 45 MG, BID
     Route: 048

REACTIONS (3)
  - Product use issue [Unknown]
  - Death [Fatal]
  - Product use in unapproved indication [Unknown]
